FAERS Safety Report 8957015 (Version 1)
Quarter: 2012Q4

REPORT INFORMATION
  Report Type: 
  Country: US (occurrence: US)
  Receive Date: 20121211
  Receipt Date: 20121211
  Transmission Date: 20130627
  Serious: No
  Sender: FDA-Public Use
  Company Number: US-PFIZER INC-2012306942

PATIENT
  Sex: Female

DRUGS (1)
  1. NEURONTIN [Suspect]
     Dosage: 2600 mg over a 12 hour
     Dates: start: 2006

REACTIONS (5)
  - Accidental overdose [Unknown]
  - Fatigue [Unknown]
  - Balance disorder [Unknown]
  - Emotional disorder [Unknown]
  - Feeling drunk [Unknown]
